FAERS Safety Report 12069782 (Version 4)
Quarter: 2016Q2

REPORT INFORMATION
  Report Type: Spontaneous
  Country: US (occurrence: US)
  Receive Date: 20160211
  Receipt Date: 20160502
  Transmission Date: 20160815
  Serious: No
  Sender: FDA-Public Use
  Company Number: US-009507513-1602USA005394

PATIENT
  Age: 22 Year
  Sex: Female
  Weight: 85.71 kg

DRUGS (2)
  1. VITAMINS (UNSPECIFIED) [Concomitant]
     Active Substance: VITAMINS
     Dosage: UNK
  2. NEXPLANON [Suspect]
     Active Substance: ETONOGESTREL
     Indication: CONTRACEPTION
     Dosage: UNK
     Route: 030
     Dates: start: 20151015, end: 201602

REACTIONS (10)
  - Depression [Unknown]
  - Device deployment issue [Recovered/Resolved]
  - Incorrect route of drug administration [Unknown]
  - Device difficult to use [Recovered/Resolved]
  - Menstruation irregular [Recovering/Resolving]
  - Complication associated with device [Recovered/Resolved]
  - Vaginal haemorrhage [Unknown]
  - Hypoaesthesia [Unknown]
  - Acne [Unknown]
  - Mood altered [Unknown]

NARRATIVE: CASE EVENT DATE: 20151015
